FAERS Safety Report 19663142 (Version 1)
Quarter: 2021Q3

REPORT INFORMATION
  Report Type: Report from Study
  Country: HK (occurrence: HK)
  Receive Date: 20210805
  Receipt Date: 20210805
  Transmission Date: 20211014
  Serious: Yes (Other)
  Sender: FDA-Public Use
  Company Number: HK-TEVA-2021-HK-1938213

PATIENT
  Age: 45 Year
  Sex: Female

DRUGS (5)
  1. BISACODYL. [Suspect]
     Active Substance: BISACODYL
     Indication: DRUG THERAPY
     Route: 065
  2. SIBUTRAMINE [Suspect]
     Active Substance: SIBUTRAMINE
     Indication: DRUG THERAPY
     Route: 065
  3. HYDROCHLOROTHIAZIDE. [Suspect]
     Active Substance: HYDROCHLOROTHIAZIDE
     Indication: DRUG THERAPY
     Route: 065
  4. CHLORPHENIRAMINE. [Suspect]
     Active Substance: CHLORPHENIRAMINE
     Indication: DRUG THERAPY
     Route: 065
  5. FLUOXETINE [Suspect]
     Active Substance: FLUOXETINE HYDROCHLORIDE
     Indication: DRUG THERAPY
     Route: 065

REACTIONS (7)
  - Liver function test abnormal [Unknown]
  - Intentional product misuse [Unknown]
  - Coma [Unknown]
  - Toxicity to various agents [Unknown]
  - Off label use [Unknown]
  - Renal function test abnormal [Unknown]
  - Overdose [Unknown]
